FAERS Safety Report 6562673-7 (Version None)
Quarter: 2010Q1

REPORT INFORMATION
  Report Type: 
  Country: None (occurrence: None)
  Receive Date: 20100130
  Receipt Date: 20091201
  Transmission Date: 20100710
  Serious: No
  Sender: FDA-Public Use
  Company Number: US-ABBOTT-09P-163-0609046-00

PATIENT
  Sex: Male
  Weight: 172.52 kg

DRUGS (2)
  1. HUMIRA [Suspect]
     Indication: PSORIATIC ARTHROPATHY
     Route: 058
     Dates: start: 20060101, end: 20080101
  2. HUMIRA [Suspect]
     Dates: start: 20080101

REACTIONS (2)
  - DRUG EFFECT DECREASED [None]
  - INJECTION SITE PAIN [None]
